FAERS Safety Report 7725529-X (Version None)
Quarter: 2011Q3

REPORT INFORMATION
  Report Type: 
  Country: None (occurrence: None)
  Receive Date: 20110902
  Receipt Date: 20110822
  Transmission Date: 20111222
  Serious: Yes (Other)
  Sender: FDA-Public Use
  Company Number: US-JNJFOC-20110812142

PATIENT

DRUGS (3)
  1. CISPLATIN [Suspect]
     Indication: PRODUCT USED FOR UNKNOWN INDICATION
     Route: 065
     Dates: start: 20110801
  2. DOXORUBICIN HCL [Suspect]
     Indication: PRODUCT USED FOR UNKNOWN INDICATION
     Dosage: 2 TREATMENTS WITH 1 WEEK OFF
     Route: 042
     Dates: end: 20110101
  3. GEMZAR [Suspect]
     Indication: PRODUCT USED FOR UNKNOWN INDICATION
     Route: 065
     Dates: start: 20110801

REACTIONS (3)
  - INFLUENZA LIKE ILLNESS [None]
  - COLON CANCER RECURRENT [None]
  - DRUG DOSE OMISSION [None]
